FAERS Safety Report 22624823 (Version 1)
Quarter: 2023Q2

REPORT INFORMATION
  Report Type: Spontaneous
  Country: US (occurrence: None)
  Receive Date: 20230620
  Receipt Date: 20230620
  Transmission Date: 20230721
  Serious: Yes (Death)
  Sender: FDA-Public Use
  Company Number: None

PATIENT
  Age: 79 Year
  Sex: Male

DRUGS (1)
  1. ELIQUIS [Suspect]
     Active Substance: APIXABAN
     Dosage: FREQUENCY : TWICE A DAY;?
     Route: 048

REACTIONS (5)
  - Unresponsive to stimuli [None]
  - Unresponsive to stimuli [None]
  - Anisocoria [None]
  - Cerebral haemorrhage [None]
  - Cerebral mass effect [None]

NARRATIVE: CASE EVENT DATE: 20230315
